FAERS Safety Report 23762141 (Version 2)
Quarter: 2024Q2

REPORT INFORMATION
  Report Type: Spontaneous
  Country: US (occurrence: US)
  Receive Date: 20240419
  Receipt Date: 20240502
  Transmission Date: 20240716
  Serious: Yes (Other)
  Sender: FDA-Public Use
  Company Number: US-BRISTOL-MYERS SQUIBB COMPANY-2024-058869

PATIENT
  Age: 74 Year
  Sex: Male
  Weight: 68.95 kg

DRUGS (1)
  1. LENALIDOMIDE [Suspect]
     Active Substance: LENALIDOMIDE
     Indication: Plasma cell myeloma
     Dosage: 2.5 MG THREE CAPSULES (TOTAL OF 7.5MG) PO DAILY
     Route: 048
     Dates: start: 20230822, end: 20240401

REACTIONS (1)
  - Plasma cell myeloma recurrent [Not Recovered/Not Resolved]
